FAERS Safety Report 17306056 (Version 4)
Quarter: 2020Q2

REPORT INFORMATION
  Report Type: Report from Study
  Country: US (occurrence: US)
  Receive Date: 20200123
  Receipt Date: 20200421
  Transmission Date: 20200713
  Serious: Yes (Other)
  Sender: FDA-Public Use
  Company Number: NVSC2020US013427

PATIENT
  Sex: Female

DRUGS (2)
  1. GILENYA [Suspect]
     Active Substance: FINGOLIMOD HYDROCHLORIDE
     Indication: MULTIPLE SCLEROSIS
     Dosage: 0.5 MG, QD
     Route: 048
     Dates: start: 201207
  2. GILENYA [Suspect]
     Active Substance: FINGOLIMOD HYDROCHLORIDE
     Dosage: 0.5 MG, QD
     Route: 048
     Dates: start: 20191021

REACTIONS (7)
  - Vision blurred [Unknown]
  - Night blindness [Unknown]
  - Visual impairment [Unknown]
  - Restless legs syndrome [Unknown]
  - Concomitant disease aggravated [Unknown]
  - Paraesthesia [Unknown]
  - Multiple sclerosis relapse [Unknown]
